FAERS Safety Report 24965634 (Version 1)
Quarter: 2025Q1

REPORT INFORMATION
  Report Type: Spontaneous
  Country: US (occurrence: None)
  Receive Date: 20250213
  Receipt Date: 20250213
  Transmission Date: 20250409
  Serious: Yes (Other)
  Sender: FDA-CTU
  Company Number: None

PATIENT
  Age: 47 Year
  Sex: Female
  Weight: 112.5 kg

DRUGS (1)
  1. METFORMIN [Suspect]
     Active Substance: METFORMIN HYDROCHLORIDE
     Indication: Insulin resistance
     Route: 048

REACTIONS (11)
  - Diarrhoea [None]
  - Insomnia [None]
  - Abnormal dreams [None]
  - Headache [None]
  - Lacrimation increased [None]
  - Rhinorrhoea [None]
  - Pollakiuria [None]
  - Lethargy [None]
  - Amenorrhoea [None]
  - Insulin resistance [None]
  - Ovulation disorder [None]

NARRATIVE: CASE EVENT DATE: 20250106
